FAERS Safety Report 6615115-7 (Version None)
Quarter: 2010Q1

REPORT INFORMATION
  Report Type: 
  Country: None (occurrence: None)
  Receive Date: 20100226
  Receipt Date: 20100215
  Transmission Date: 20100710
  Serious: Yes (Other)
  Sender: FDA-Public Use
  Company Number: WAES 1002USA01078

PATIENT
  Sex: 0

DRUGS (1)
  1. PEPCID RPD [Suspect]
     Dosage: PO
     Route: 048

REACTIONS (1)
  - LARGE INTESTINE CARCINOMA [None]
